FAERS Safety Report 15300090 (Version 1)
Quarter: 2018Q3

REPORT INFORMATION
  Report Type: Spontaneous
  Country: US (occurrence: US)
  Receive Date: 20180808
  Receipt Date: 20180808
  Transmission Date: 20181010
  Serious: No
  Sender: FDA-Public Use
  Company Number: None

PATIENT
  Age: 59 Year
  Sex: Female
  Weight: 92.08 kg

DRUGS (1)
  1. XOLAIR [Suspect]
     Active Substance: OMALIZUMAB
     Indication: IDIOPATHIC URTICARIA
     Dosage: 150MG/1.2 ML Q4W SQ
     Route: 058
     Dates: start: 20180713

REACTIONS (4)
  - Vasculitic rash [None]
  - Musculoskeletal pain [None]
  - Arthralgia [None]
  - Vasculitis [None]

NARRATIVE: CASE EVENT DATE: 20180713
